FAERS Safety Report 25982681 (Version 1)
Quarter: 2025Q4

REPORT INFORMATION
  Report Type: Report from Study
  Country: EG (occurrence: EG)
  Receive Date: 20251031
  Receipt Date: 20251031
  Transmission Date: 20260118
  Serious: Yes (Other)
  Sender: ROCHE
  Company Number: EG-ROCHE-10000417393

PATIENT
  Age: 79 Year
  Sex: Female

DRUGS (1)
  1. HERCEPTIN [Suspect]
     Active Substance: TRASTUZUMAB
     Indication: Breast cancer metastatic
     Route: 058
     Dates: start: 20250408

REACTIONS (3)
  - Disease progression [Unknown]
  - Cardiomyopathy [Unknown]
  - Ejection fraction [Unknown]

NARRATIVE: CASE EVENT DATE: 20250713
